FAERS Safety Report 5057455-1 (Version None)
Quarter: 2006Q3

REPORT INFORMATION
  Report Type: 
  Country: None (occurrence: None)
  Receive Date: 20060721
  Receipt Date: 20051010
  Transmission Date: 20061208
  Serious: No
  Sender: FDA-Public Use
  Company Number: 20050800236

PATIENT
  Age: 42 Year
  Sex: Female

DRUGS (5)
  1. AVANDIA [Suspect]
     Indication: DIABETES MELLITUS
  2. RISPERDAL [Suspect]
     Indication: SCHIZOPHRENIA
     Dosage: 50MG SEE DOSAGE TEXT
     Route: 030
     Dates: start: 20040701
  3. NOVOLOG [Suspect]
     Indication: DIABETES MELLITUS
     Route: 065
  4. METFORMIN [Suspect]
     Indication: DIABETES MELLITUS
     Route: 048
  5. TRICOR [Suspect]
     Dosage: 1TAB PER DAY
     Route: 048

REACTIONS (1)
  - DRUG EXPOSURE DURING PREGNANCY [None]
